FAERS Safety Report 11242965 (Version 6)
Quarter: 2015Q4

REPORT INFORMATION
  Report Type: Spontaneous
  Country: GB (occurrence: GB)
  Receive Date: 20150707
  Receipt Date: 20151119
  Transmission Date: 20160304
  Serious: Yes (Death, Hospitalization, Other)
  Sender: FDA-Public Use
  Company Number: GB-ACTAVISPR-2015-13060

PATIENT
  Age: 44 Year
  Sex: Male

DRUGS (12)
  1. BOTOX [Suspect]
     Active Substance: ONABOTULINUMTOXINA
     Indication: BLADDER DISORDER
     Dosage: 200 IU, SINGLE
     Dates: start: 20150608, end: 20150608
  2. SIMVASTATIN. [Concomitant]
     Active Substance: SIMVASTATIN
     Indication: HYPERCHOLESTEROLAEMIA
     Dosage: 40 MG, DAILY
     Route: 048
  3. ASPIRIN. [Concomitant]
     Active Substance: ASPIRIN
     Indication: PRODUCT USED FOR UNKNOWN INDICATION
     Dosage: 75 MG, DAILY
     Route: 048
  4. OMEPRAZOLE. [Concomitant]
     Active Substance: OMEPRAZOLE
     Indication: PRODUCT USED FOR UNKNOWN INDICATION
     Dosage: 40 MG, DAILY
     Route: 048
  5. QUETIAPINE [Concomitant]
     Active Substance: QUETIAPINE
     Indication: PERSONALITY DISORDER
     Dosage: 45 MG, DAILY
     Route: 048
  6. TRIMETHOPRIM (UNKNOWN) [Suspect]
     Active Substance: TRIMETHOPRIM
     Indication: URINARY TRACT INFECTION
     Dosage: 200 MG, UNK
     Route: 048
     Dates: start: 20150608, end: 20150610
  7. CLOPIDOGREL [Concomitant]
     Active Substance: CLOPIDOGREL BISULFATE
     Indication: PRODUCT USED FOR UNKNOWN INDICATION
     Dosage: 75 MG, DAILY
     Route: 048
  8. METFORMIN [Concomitant]
     Active Substance: METFORMIN HYDROCHLORIDE
     Indication: TYPE 2 DIABETES MELLITUS
     Dosage: UNK UNK, DAILY
     Route: 048
  9. LACTULOSE. [Concomitant]
     Active Substance: LACTULOSE
     Indication: PRODUCT USED FOR UNKNOWN INDICATION
     Dosage: 10 ML, BID
     Route: 048
     Dates: start: 20150614
  10. BOTOX [Suspect]
     Active Substance: ONABOTULINUMTOXINA
     Indication: OFF LABEL USE
  11. DESMOPRESSIN [Concomitant]
     Active Substance: DESMOPRESSIN
     Indication: NOCTURIA
     Dosage: 200 ?G, DAILY
     Route: 048
  12. MIRTAZAPINE. [Concomitant]
     Active Substance: MIRTAZAPINE
     Indication: PERSONALITY DISORDER
     Dosage: 45 MG, DAILY
     Route: 048

REACTIONS (8)
  - Off label use [Unknown]
  - Malaise [Not Recovered/Not Resolved]
  - Alanine aminotransferase increased [Unknown]
  - Multi-organ failure [Fatal]
  - Septic shock [Fatal]
  - Blood bilirubin increased [Unknown]
  - Blood creatinine increased [Unknown]
  - Fall [Not Recovered/Not Resolved]

NARRATIVE: CASE EVENT DATE: 20150608
